FAERS Safety Report 25797528 (Version 1)
Quarter: 2025Q3

REPORT INFORMATION
  Report Type: Spontaneous
  Country: PH (occurrence: PH)
  Receive Date: 20250912
  Receipt Date: 20250912
  Transmission Date: 20251021
  Serious: Yes (Other)
  Sender: ABBVIE
  Company Number: PH-RICHTER-2025-GR-010554

PATIENT
  Age: 14 Year
  Sex: Male
  Weight: 42 kg

DRUGS (1)
  1. CARIPRAZINE [Suspect]
     Active Substance: CARIPRAZINE
     Indication: Antipsychotic therapy
     Dosage: 1.5MG ONCE A DAY
     Route: 048
     Dates: start: 20250618, end: 20250621

REACTIONS (6)
  - Unresponsive to stimuli [Unknown]
  - Product use issue [Recovered/Resolved]
  - Hallucination [Unknown]
  - Disturbance in attention [Unknown]
  - Agitation [Unknown]
  - Mood swings [Unknown]

NARRATIVE: CASE EVENT DATE: 20250618
